FAERS Safety Report 25892444 (Version 2)
Quarter: 2025Q4

REPORT INFORMATION
  Report Type: Spontaneous
  Country: JP (occurrence: JP)
  Receive Date: 20251007
  Receipt Date: 20251015
  Transmission Date: 20260118
  Serious: Yes (Hospitalization)
  Sender: LEO PHARM
  Company Number: JP-LEO Pharma-382507

PATIENT

DRUGS (1)
  1. ADBRY [Suspect]
     Active Substance: TRALOKINUMAB-LDRM
     Indication: Dermatitis atopic
     Dosage: AS PER DOSAGE AND ADMINISTRATION
     Route: 058

REACTIONS (3)
  - Clavicle fracture [Unknown]
  - Rib fracture [Unknown]
  - Fall [Unknown]
